FAERS Safety Report 8122941-4 (Version None)
Quarter: 2012Q1

REPORT INFORMATION
  Report Type: 
  Country: None (occurrence: None)
  Receive Date: 20120208
  Receipt Date: 20120203
  Transmission Date: 20120608
  Serious: Yes (Other)
  Sender: FDA-Public Use
  Company Number: GXKR2012DE000762

PATIENT
  Age: 87 Year
  Sex: Female

DRUGS (2)
  1. ENALAPRIL MALEATE [Suspect]
     Indication: HYPERTENSION
     Dosage: 2.5 MG, PRN
     Route: 048
  2. ENALAPRIL MALEATE [Suspect]
     Dosage: 2.5 MG, PRN
     Route: 048

REACTIONS (3)
  - INCORRECT DOSE ADMINISTERED [None]
  - HALLUCINATION [None]
  - DIZZINESS [None]
